FAERS Safety Report 4755853-4 (Version None)
Quarter: 2005Q3

REPORT INFORMATION
  Report Type: 
  Country: None (occurrence: None)
  Receive Date: 20050830
  Receipt Date: 20050525
  Transmission Date: 20060218
  Serious: Yes (Other)
  Sender: FDA-Public Use
  Company Number: US-BRISTOL-MYERS SQUIBB COMPANY-12982609

PATIENT
  Age: 47 Year
  Sex: Male

DRUGS (3)
  1. ERBITUX [Suspect]
     Dosage: INITIAL TREATMENT; 400 MG/M2 GIVEN AT 2.5 CC/MIN.
     Route: 042
     Dates: start: 20050525, end: 20050525
  2. DIPHENHYDRAMINE HCL [Concomitant]
     Indication: PREMEDICATION
     Route: 042
     Dates: start: 20050525, end: 20050525
  3. ANTIHYPERTENSIVE [Concomitant]

REACTIONS (1)
  - HYPERSENSITIVITY [None]
